FAERS Safety Report 25652606 (Version 2)
Quarter: 2025Q3

REPORT INFORMATION
  Report Type: Report from Study
  Country: US (occurrence: US)
  Receive Date: 20250807
  Receipt Date: 20250901
  Transmission Date: 20251021
  Serious: No
  Sender: SUNOVION
  Company Number: US-SMPA-2025SPA009846

PATIENT
  Age: 84 Year
  Sex: Male

DRUGS (3)
  1. ORGOVYX [Suspect]
     Active Substance: RELUGOLIX
     Indication: Prostate cancer
     Route: 048
  2. ORGOVYX [Suspect]
     Active Substance: RELUGOLIX
     Route: 048
  3. BUFFERIN [Concomitant]
     Active Substance: ASPIRIN

REACTIONS (6)
  - Blood potassium increased [Unknown]
  - Blood testosterone increased [Unknown]
  - Blood pressure abnormal [Unknown]
  - Urinary incontinence [Unknown]
  - Hot flush [Recovering/Resolving]
  - Asthenia [Unknown]
